FAERS Safety Report 8805655 (Version 1)
Quarter: 2012Q4

REPORT INFORMATION
  Report Type: Report from Study
  Country: US (occurrence: US)
  Receive Date: 20120924
  Receipt Date: 20120924
  Transmission Date: 20130627
  Serious: Yes (Other)
  Sender: FDA-Public Use
  Company Number: US-ABBOTT-12P-163-0980978-00

PATIENT
  Age: 53 Year
  Sex: Female

DRUGS (6)
  1. HUMIRA [Suspect]
     Dates: start: 2002
  2. SULFASALAZINE [Concomitant]
     Indication: CROHN^S DISEASE
     Dosage: 500 mg, 6 daily
  3. CALCIUM [Concomitant]
  4. DIOBAS [Concomitant]
     Indication: HYPERTENSION
     Dates: start: 200906
  5. AMLODIPINE [Concomitant]
     Dosage: 10 mg daily
  6. SAVELLA [Concomitant]

REACTIONS (15)
  - Urinary incontinence [Not Recovered/Not Resolved]
  - Anaemia [Unknown]
  - Hypertension [Unknown]
  - Weight decreased [Not Recovered/Not Resolved]
  - Nausea [Unknown]
  - Drug ineffective [Unknown]
  - Pain in extremity [Unknown]
  - Rheumatoid arthritis [Unknown]
  - Pain in extremity [Not Recovered/Not Resolved]
  - Back pain [Unknown]
  - Fibromyalgia [Unknown]
  - Nervousness [Unknown]
  - Bowel movement irregularity [Unknown]
  - Pain in extremity [Unknown]
  - Pain in extremity [Unknown]
